FAERS Safety Report 12967621 (Version 3)
Quarter: 2016Q4

REPORT INFORMATION
  Report Type: Report from Study
  Country: BE (occurrence: BE)
  Receive Date: 20161123
  Receipt Date: 20161205
  Transmission Date: 20170207
  Serious: Yes (Other)
  Sender: FDA-Public Use
  Company Number: PHHY2016BE158698

PATIENT
  Sex: Female

DRUGS (4)
  1. TRAMETINIB [Suspect]
     Active Substance: TRAMETINIB
     Indication: METASTATIC MALIGNANT MELANOMA
     Dosage: UNK
     Route: 048
     Dates: end: 2016
  2. TRAMETINIB [Suspect]
     Active Substance: TRAMETINIB
     Dosage: 0.5 MG QD
     Route: 048
     Dates: start: 20160927
  3. DABRAFENIB [Suspect]
     Active Substance: DABRAFENIB
     Dosage: 50 MG
     Route: 048
  4. DABRAFENIB [Suspect]
     Active Substance: DABRAFENIB
     Indication: METASTATIC MALIGNANT MELANOMA
     Dosage: UNK
     Route: 048

REACTIONS (5)
  - Melanoma recurrent [Unknown]
  - General physical health deterioration [Unknown]
  - Nodular melanoma [Unknown]
  - Pemphigus [Unknown]
  - Malignant neoplasm progression [Unknown]
